FAERS Safety Report 4887496-6 (Version None)
Quarter: 2006Q1

REPORT INFORMATION
  Report Type: 
  Country: None (occurrence: None)
  Receive Date: 20060123
  Receipt Date: 20051111
  Transmission Date: 20060701
  Serious: Yes (Disabling)
  Sender: FDA-Public Use
  Company Number: 2005GB02240

PATIENT
  Age: 777 Month
  Sex: Male

DRUGS (11)
  1. BICALUTAMIDE [Suspect]
     Indication: PROSTATE CANCER
     Route: 048
     Dates: start: 20050501, end: 20051201
  2. CO-DYDRAMOL [Concomitant]
     Indication: PAIN
     Dosage: 1-2 QID
     Route: 048
  3. ZOLPIDEM TARTRATE [Concomitant]
     Indication: INSOMNIA
     Route: 048
  4. DICLOFENAC [Concomitant]
     Indication: PAIN
     Route: 048
  5. DICLOFENAC [Concomitant]
     Indication: INFLAMMATION
     Route: 048
  6. CIPROFLOXACIN [Concomitant]
  7. CEPHALEXIN [Concomitant]
  8. TRIMETHOPRIM [Concomitant]
  9. ERYTHROMYCIN [Concomitant]
  10. CLINDAMYCIN [Concomitant]
     Dosage: BEFORE OPERATION
     Route: 042
  11. CHLORAMPHENICOL [Concomitant]
     Route: 047

REACTIONS (3)
  - DRY EYE [None]
  - NAUSEA [None]
  - PRURITUS [None]
